FAERS Safety Report 11166383 (Version 1)
Quarter: 2015Q2

REPORT INFORMATION
  Report Type: Spontaneous
  Country: US (occurrence: US)
  Receive Date: 20150605
  Receipt Date: 20150605
  Transmission Date: 20150821
  Serious: No
  Sender: FDA-Public Use
  Company Number: US-JNJFOC-20150418907

PATIENT
  Age: 63 Year
  Sex: Male
  Weight: 51.71 kg

DRUGS (1)
  1. SPORANOX [Suspect]
     Active Substance: ITRACONAZOLE\SODIUM CHLORIDE
     Indication: IMMUNE SYSTEM DISORDER
     Route: 048
     Dates: start: 2013

REACTIONS (2)
  - Product packaging issue [Unknown]
  - Tongue disorder [Not Recovered/Not Resolved]

NARRATIVE: CASE EVENT DATE: 20150408
